FAERS Safety Report 10747364 (Version 1)
Quarter: 2015Q1

REPORT INFORMATION
  Report Type: Spontaneous
  Country: IT (occurrence: IT)
  Receive Date: 20150129
  Receipt Date: 20150129
  Transmission Date: 20150721
  Serious: Yes (Other)
  Sender: FDA-Public Use
  Company Number: IT-AUROBINDO-AUR-APL-2015-00528

PATIENT
  Age: 78 Year
  Sex: Male

DRUGS (8)
  1. ISOCOLAN GIULIANI [Suspect]
     Active Substance: BICARBONATE ION\POLYETHYLENE GLYCOL 4000\POTASSIUM CATION\SODIUM CATION\SODIUM SULFATE ANHYDROUS
     Indication: COLONOSCOPY
     Dosage: 16 DF, UNK
     Route: 048
     Dates: start: 20140113, end: 20140113
  2. LUVION                             /00252501/ [Suspect]
     Active Substance: CANRENONE
     Indication: PRODUCT USED FOR UNKNOWN INDICATION
     Dosage: 50 MG, DAILY
     Route: 048
     Dates: start: 20140103, end: 20140115
  3. IPRAXA [Concomitant]
     Indication: PRODUCT USED FOR UNKNOWN INDICATION
     Dosage: UNK
     Route: 065
  4. REPAGLINIDE 0.5MG [Suspect]
     Active Substance: REPAGLINIDE
     Indication: DIABETES MELLITUS
     Dosage: 0.5 MG, DAILY
     Route: 048
     Dates: start: 20140110, end: 20140115
  5. ZAROXOLYN [Suspect]
     Active Substance: METOLAZONE
     Indication: CARDIAC FAILURE
     Dosage: 5 MG, DAILY
     Route: 048
     Dates: start: 20140111, end: 20140113
  6. EPREX [Concomitant]
     Active Substance: ERYTHROPOIETIN
     Indication: PRODUCT USED FOR UNKNOWN INDICATION
     Route: 065
  7. LASIX [Suspect]
     Active Substance: FUROSEMIDE
     Indication: CARDIAC FAILURE
     Dosage: 250 MG, DAILY
     Route: 048
     Dates: start: 20140103, end: 20140113
  8. LANSOX [Concomitant]
     Active Substance: LANSOPRAZOLE
     Indication: PRODUCT USED FOR UNKNOWN INDICATION
     Dosage: UNK
     Route: 065

REACTIONS (2)
  - Chronic kidney disease [Recovered/Resolved]
  - Blood creatinine increased [Recovered/Resolved]

NARRATIVE: CASE EVENT DATE: 20140116
